FAERS Safety Report 17821974 (Version 6)
Quarter: 2025Q2

REPORT INFORMATION
  Report Type: Spontaneous
  Country: PL (occurrence: PL)
  Receive Date: 20200526
  Receipt Date: 20250428
  Transmission Date: 20250717
  Serious: Yes (Disabling, Other)
  Sender: AUROBINDO
  Company Number: PL-ZENTIVA-2020-ZT-005377

PATIENT
  Age: 22 Year
  Sex: Female

DRUGS (12)
  1. LAMOTRIGINE [Interacting]
     Active Substance: LAMOTRIGINE
     Indication: Epilepsy
     Dosage: 200 MILLIGRAM, ONCE A DAY
     Route: 065
  2. LAMOTRIGINE [Interacting]
     Active Substance: LAMOTRIGINE
     Indication: Automatism epileptic
     Dosage: 250 MILLIGRAM, ONCE A DAY
     Route: 065
  3. LAMOTRIGINE [Interacting]
     Active Substance: LAMOTRIGINE
     Indication: Partial seizures with secondary generalisation
     Dosage: 300 MILLIGRAM, ONCE A DAY
     Route: 065
  4. LAMOTRIGINE [Interacting]
     Active Substance: LAMOTRIGINE
     Dosage: 200 MILLIGRAM, ONCE A DAY
     Route: 065
  5. LEVETIRACETAM [Suspect]
     Active Substance: LEVETIRACETAM
     Indication: Seizure
     Dosage: 1500 MILLIGRAM, ONCE A DAY
     Route: 065
  6. LEVETIRACETAM [Suspect]
     Active Substance: LEVETIRACETAM
     Indication: Epilepsy
     Dosage: 2500 MILLIGRAM, ONCE A DAY
     Route: 065
  7. SERTRALINE [Suspect]
     Active Substance: SERTRALINE HYDROCHLORIDE
     Indication: Depression
     Dosage: 50 MILLIGRAM, ONCE A DAY (IN THE MORNING)
     Route: 065
  8. SERTRALINE [Suspect]
     Active Substance: SERTRALINE HYDROCHLORIDE
     Indication: Depressed mood
  9. LACOSAMIDE [Interacting]
     Active Substance: LACOSAMIDE
     Indication: Epilepsy
     Dosage: 300 MILLIGRAM, ONCE A DAY
     Route: 065
  10. LACOSAMIDE [Interacting]
     Active Substance: LACOSAMIDE
     Indication: Partial seizures with secondary generalisation
     Dosage: 450 MILLIGRAM, ONCE A DAY
     Route: 065
  11. LACOSAMIDE [Interacting]
     Active Substance: LACOSAMIDE
     Indication: Automatism epileptic
     Dosage: 500 MILLIGRAM, ONCE A DAY
     Route: 065
  12. LACOSAMIDE [Interacting]
     Active Substance: LACOSAMIDE
     Indication: Seizure

REACTIONS (7)
  - Neurotoxicity [Recovered/Resolved]
  - Drug interaction [Recovered/Resolved]
  - Diplopia [Recovered/Resolved]
  - Dizziness [Recovered/Resolved]
  - Seizure [Recovering/Resolving]
  - Therapeutic product effect incomplete [Recovered/Resolved]
  - Off label use [Recovered/Resolved]
